FAERS Safety Report 11146754 (Version 1)
Quarter: 2015Q2

REPORT INFORMATION
  Report Type: Report from Study
  Country: US (occurrence: US)
  Receive Date: 20150528
  Receipt Date: 20150528
  Transmission Date: 20150821
  Serious: Yes (Other)
  Sender: FDA-Public Use
  Company Number: PHEH2015US009797

PATIENT
  Sex: Female
  Weight: 85.27 kg

DRUGS (1)
  1. GILENYA [Suspect]
     Active Substance: FINGOLIMOD HYDROCHLORIDE
     Indication: MULTIPLE SCLEROSIS
     Dosage: 0.5 MG, QD
     Route: 048

REACTIONS (9)
  - Depression [Unknown]
  - Obsessive-compulsive disorder [Unknown]
  - Encephalopathy [Unknown]
  - Paraesthesia [Unknown]
  - Faecal incontinence [Unknown]
  - Multiple sclerosis [Unknown]
  - Migraine [Unknown]
  - Memory impairment [Unknown]
  - Migraine without aura [Unknown]
